FAERS Safety Report 8087498 (Version 4)
Quarter: 2013Q3

REPORT INFORMATION
  Report Type: Spontaneous
  Country: JP (occurrence: JP)
  Receive Date: 20110812
  Receipt Date: 20130808
  Transmission Date: 20140515
  Serious: Yes (Hospitalization, Other)
  Sender: FDA-Public Use
  Company Number: JP-JNJFOC-20110803336

PATIENT
  Age: 48 Year
  Sex: Male
  Weight: 88 kg

DRUGS (4)
  1. REMICADE [Suspect]
     Indication: CROHN^S DISEASE
     Dosage: 9TH DOSE
     Route: 042
     Dates: start: 20110428
  2. REMICADE [Suspect]
     Indication: CROHN^S DISEASE
     Dosage: 1ST DOSE
     Route: 042
     Dates: start: 20100218
  3. RIBAVIRIN [Concomitant]
     Indication: CHRONIC HEPATITIS C
     Route: 065
     Dates: start: 200901
  4. INTERFERON [Concomitant]
     Indication: CHRONIC HEPATITIS C
     Route: 065
     Dates: start: 200901

REACTIONS (2)
  - Sepsis [Recovering/Resolving]
  - Infective spondylitis [Recovered/Resolved]
